FAERS Safety Report 8392841-3 (Version None)
Quarter: 2012Q2

REPORT INFORMATION
  Report Type: 
  Country: None (occurrence: None)
  Receive Date: 20120525
  Receipt Date: 20120525
  Transmission Date: 20120825
  Serious: Yes (Other)
  Sender: FDA-Public Use
  Company Number: None

PATIENT
  Age: 59 Year
  Sex: Female

DRUGS (1)
  1. XELODA [Suspect]
     Dosage: 1500MGA2000MGP BID PO
     Route: 048
     Dates: start: 20120414, end: 20120505

REACTIONS (3)
  - SWELLING [None]
  - PAIN [None]
  - ABASIA [None]
